FAERS Safety Report 13566899 (Version 1)
Quarter: 2017Q2

REPORT INFORMATION
  Report Type: Spontaneous
  Country: US (occurrence: US)
  Receive Date: 20170522
  Receipt Date: 20170522
  Transmission Date: 20170830
  Serious: No
  Sender: FDA-Public Use
  Company Number: US-B.I. PHARMACEUTICALS,INC./RIDGEFIELD-2017-BI-027451

PATIENT
  Sex: Female

DRUGS (2)
  1. METFORMIN [Concomitant]
     Active Substance: METFORMIN HYDROCHLORIDE
     Indication: POLYCYSTIC OVARIES
     Dosage: 1 TABLET DAILY;  FORM STRENGTH: 25 MG/ 5 MG; FORMULATION: TABLET? ADMINISTRATION CORRECT? NR(NOT REP
  2. GLYXAMBI [Suspect]
     Active Substance: EMPAGLIFLOZIN\LINAGLIPTIN
     Indication: POLYCYSTIC OVARIES
     Dosage: 1 TABLET DAILY;  FORM STRENGTH: 25 MG/ 5 MG; FORMULATION: TABLET? ADMINISTRATION CORRECT? NR(NOT REP
     Route: 048

REACTIONS (2)
  - Off label use [Unknown]
  - Fungal infection [Unknown]
